FAERS Safety Report 7730332-0 (Version None)
Quarter: 2011Q3

REPORT INFORMATION
  Report Type: 
  Country: None (occurrence: None)
  Receive Date: 20110906
  Receipt Date: 20110824
  Transmission Date: 20111222
  Serious: Yes (Death, Hospitalization, Other)
  Sender: FDA-Public Use
  Company Number: US-ELI_LILLY_AND_COMPANY-US201108007879

PATIENT
  Sex: Female

DRUGS (9)
  1. LORTAB [Concomitant]
  2. FORTEO [Suspect]
     Dosage: 20 UG, QD
     Dates: end: 20110801
  3. ATIVAN [Concomitant]
  4. FORTEO [Suspect]
     Indication: OSTEOPOROSIS
     Dosage: 20 UG, QD
     Dates: start: 20100401
  5. FENTANYL [Concomitant]
     Route: 062
  6. LIDODERM [Concomitant]
     Route: 062
  7. CALCIUM CARBONATE [Concomitant]
  8. CELEBREX [Concomitant]
  9. FIBER [Concomitant]

REACTIONS (3)
  - HOSPITALISATION [None]
  - RESPIRATORY FAILURE [None]
  - PULMONARY FIBROSIS [None]
